FAERS Safety Report 7336318-2 (Version None)
Quarter: 2011Q1

REPORT INFORMATION
  Report Type: 
  Country: None (occurrence: None)
  Receive Date: 20110307
  Receipt Date: 20110301
  Transmission Date: 20110831
  Serious: Yes (Hospitalization)
  Sender: FDA-Public Use
  Company Number: US-RB-017998-10

PATIENT
  Age: 40 Year
  Sex: Female

DRUGS (1)
  1. SUBOXONE [Suspect]
     Indication: DRUG DEPENDENCE
     Route: 065
     Dates: start: 20100601, end: 20101001

REACTIONS (4)
  - INTENTIONAL DRUG MISUSE [None]
  - GALLBLADDER DISORDER [None]
  - VOMITING [None]
  - APPENDICITIS [None]
